FAERS Safety Report 4791213-8 (Version None)
Quarter: 2005Q4

REPORT INFORMATION
  Report Type: 
  Country: None (occurrence: None)
  Receive Date: 20051007
  Receipt Date: 20030324
  Transmission Date: 20060501
  Serious: Yes (Life-Threatening, Other)
  Sender: FDA-Public Use
  Company Number: US-BRISTOL-MYERS SQUIBB COMPANY-12174520

PATIENT
  Age: 56 Year
  Sex: Male
  Weight: 88 kg

DRUGS (4)
  1. CARBOPLATIN [Suspect]
     Indication: NON-SMALL CELL LUNG CANCER
     Route: 042
     Dates: start: 20020311, end: 20020311
  2. CETUXIMAB [Suspect]
     Indication: NON-SMALL CELL LUNG CANCER
     Route: 042
     Dates: start: 20020311, end: 20020311
  3. GEMCITABINE [Suspect]
     Indication: NON-SMALL CELL LUNG CANCER
     Route: 042
     Dates: start: 20020311, end: 20020311
  4. ALLOPURINOL [Concomitant]
     Indication: GOUT

REACTIONS (1)
  - PULMONARY EMBOLISM [None]
